FAERS Safety Report 8340228-1 (Version None)
Quarter: 2012Q2

REPORT INFORMATION
  Report Type: 
  Country: None (occurrence: None)
  Receive Date: 20120507
  Receipt Date: 20120502
  Transmission Date: 20120825
  Serious: Yes (Hospitalization)
  Sender: FDA-Public Use
  Company Number: US-GILEAD-2012-0054562

PATIENT
  Sex: Female

DRUGS (2)
  1. REMODULIN [Concomitant]
  2. LETAIRIS [Suspect]
     Indication: PRODUCT USED FOR UNKNOWN INDICATION
     Dosage: 5 MG, UNK
     Route: 048

REACTIONS (9)
  - CARDIAC DISORDER [None]
  - FATIGUE [None]
  - PAIN [None]
  - UNEVALUABLE EVENT [None]
  - ARTHRITIS [None]
  - FALL [None]
  - SYNCOPE [None]
  - CARDIAC FAILURE CONGESTIVE [None]
  - BACK PAIN [None]
